FAERS Safety Report 22026385 (Version 4)
Quarter: 2023Q1

REPORT INFORMATION
  Report Type: Report from Study
  Country: AU (occurrence: None)
  Receive Date: 20230223
  Receipt Date: 20230328
  Transmission Date: 20230418
  Serious: Yes (Hospitalization)
  Sender: FDA-Public Use
  Company Number: AU-ROCHE-3288284

PATIENT
  Age: 65 Year
  Sex: Male
  Weight: 84.2 kg

DRUGS (15)
  1. GLOFITAMAB [Suspect]
     Active Substance: GLOFITAMAB
     Indication: Diffuse large B-cell lymphoma
     Dosage: ON 13/FEB/2023, HE RECEIVED MOST RECENT DOSE OF GLOFITAMAB PRIOR TO AE?ON 06/MAR/2023, HE RECEIVED M
     Route: 042
     Dates: start: 20230213
  2. RITUXIMAB [Suspect]
     Active Substance: RITUXIMAB
     Indication: Diffuse large B-cell lymphoma
     Dosage: ON 06/FEB/2023, HE RECEIVED MOST RECENT DOSE OF RITUXIMAB PRIOR TO AE?ON 27/FEB/2023, HE RECEIVED MO
     Route: 042
     Dates: start: 20230116
  3. OBINUTUZUMAB [Suspect]
     Active Substance: OBINUTUZUMAB
     Indication: Diffuse large B-cell lymphoma
     Dosage: ON 06/FEB/2023, HE RECEIVED MOST RECENT DOSE OF OBINUTUZUMAB PRIOR TO AE
     Route: 042
  4. POLATUZUMAB VEDOTIN [Suspect]
     Active Substance: POLATUZUMAB VEDOTIN
     Indication: Diffuse large B-cell lymphoma
     Dosage: ON 06/FEB/2023, HE RECEIVED MOST RECENT DOSE OF POLATUZUMAB VEDOTIN PRIOR TO AE?ON 27/FEB/2023, HE R
     Route: 042
     Dates: start: 20230206, end: 20230206
  5. CYCLOPHOSPHAMIDE [Suspect]
     Active Substance: CYCLOPHOSPHAMIDE
     Indication: Diffuse large B-cell lymphoma
     Dosage: ON 06/FEB/2023, HE RECEIVED MOST RECENT DOSE OF CYCLOPHOSPHAMIDE PRIOR TO AE?ON 27/FEB/2023, HE RECE
     Route: 042
     Dates: start: 20230116, end: 20230206
  6. VINCRISTINE [Suspect]
     Active Substance: VINCRISTINE
     Indication: Diffuse large B-cell lymphoma
     Dosage: ON 16/JAN/2023, HE RECEIVED MOST RECENT DOSE OF VINCRISTINE PRIOR TO AE
     Route: 042
     Dates: start: 20230116
  7. DOXORUBICIN [Suspect]
     Active Substance: DOXORUBICIN
     Indication: Diffuse large B-cell lymphoma
     Dosage: ON 06/FEB/2023, HE RECEIVED MOST RECENT DOSE OF DOXORUBICIN PRIOR TO AE?ON 27/FEB/2023, HE RECEIVED
     Route: 042
     Dates: start: 20230116, end: 20230206
  8. PREDNISOLONE [Suspect]
     Active Substance: PREDNISOLONE
     Indication: Diffuse large B-cell lymphoma
     Dosage: D1-5?ON 10/FEB/2023, HE RECEIVED MOST RECENT DOSE OF PREDNISOLONE PRIOR TO AE?ON 03/MAR/2023, HE REC
     Route: 048
     Dates: start: 20230120
  9. SULFAMETHOXAZOLE\TRIMETHOPRIM [Concomitant]
     Active Substance: SULFAMETHOXAZOLE\TRIMETHOPRIM
     Indication: Prophylaxis
     Dates: start: 20221206, end: 20221219
  10. SULFAMETHOXAZOLE\TRIMETHOPRIM [Concomitant]
     Active Substance: SULFAMETHOXAZOLE\TRIMETHOPRIM
     Dosage: 400/80 MG
     Route: 048
     Dates: start: 20230207
  11. PREDNISONE [Concomitant]
     Active Substance: PREDNISONE
     Indication: Lymphoma
     Dosage: TODAY 25 MG THEN FRIDAY 12.5 MG FOR 3 DAYS THEN 1/2 TAB FOR 3 DAYS THEN CEASE
     Dates: start: 202212, end: 20230202
  12. PANTOPRAZOLE [Concomitant]
     Active Substance: PANTOPRAZOLE
     Indication: Prophylaxis
     Dates: start: 20221206
  13. PANTOPRAZOLE [Concomitant]
     Active Substance: PANTOPRAZOLE
     Indication: Odynophagia
  14. NEULASTA [Concomitant]
     Active Substance: PEGFILGRASTIM
     Indication: Neutropenia
     Route: 058
     Dates: start: 20221206
  15. ALLOPURINOL [Concomitant]
     Active Substance: ALLOPURINOL
     Dates: start: 2015

REACTIONS (2)
  - Pyrexia [Unknown]
  - Cytokine release syndrome [Recovered/Resolved]

NARRATIVE: CASE EVENT DATE: 20230216
